FAERS Safety Report 15612581 (Version 1)
Quarter: 2018Q4

REPORT INFORMATION
  Report Type: Spontaneous
  Country: US (occurrence: US)
  Receive Date: 20181107
  Receipt Date: 20181107
  Transmission Date: 20190205
  Serious: No
  Sender: FDA-Public Use
  Company Number: None

PATIENT
  Age: 47 Year
  Sex: Female

DRUGS (2)
  1. LEVOFLOXACIN 500MG AUROBINDO PHARMACEUTICAL [Suspect]
     Active Substance: LEVOFLOXACIN
     Route: 048
     Dates: start: 20180718
  2. CETIRIZINE [Suspect]
     Active Substance: CETIRIZINE HYDROCHLORIDE
     Route: 048
     Dates: start: 20180718

REACTIONS (1)
  - Fat tissue increased [None]

NARRATIVE: CASE EVENT DATE: 201810
